FAERS Safety Report 8920368 (Version 1)
Quarter: 2012Q4

REPORT INFORMATION
  Report Type: 
  Country: US (occurrence: US)
  Receive Date: 20121122
  Receipt Date: 20121122
  Transmission Date: 20130627
  Serious: Yes (Other)
  Sender: FDA-Public Use
  Company Number: CHPA2012US023617

PATIENT
  Age: 70 Year
  Sex: Male

DRUGS (2)
  1. EXCEDRIN EXTRA STRENGTH [Suspect]
     Indication: HEADACHE
     Dosage: 1 tablet once per month
     Route: 048
     Dates: start: 1982
  2. ECOTRIN [Concomitant]
     Indication: CARDIAC DISORDER
     Route: 048

REACTIONS (2)
  - Coronary artery disease [Not Recovered/Not Resolved]
  - Underdose [Unknown]
